FAERS Safety Report 8333857-2 (Version None)
Quarter: 2012Q2

REPORT INFORMATION
  Report Type: 
  Country: None (occurrence: None)
  Receive Date: 20120503
  Receipt Date: 20120430
  Transmission Date: 20120825
  Serious: Yes (Hospitalization)
  Sender: FDA-Public Use
  Company Number: FR-PFIZER INC-2012105584

PATIENT
  Age: 30 Year
  Sex: Female

DRUGS (1)
  1. PIPERACILLIN AND TAZOBACTAM [Suspect]
     Indication: LUNG DISORDER
     Dosage: 4 G, 3X/DAY
     Route: 042
     Dates: start: 20120307, end: 20120313

REACTIONS (3)
  - HAEMOLYTIC ANAEMIA [None]
  - HYPERBILIRUBINAEMIA [None]
  - BLOOD LACTATE DEHYDROGENASE INCREASED [None]
